FAERS Safety Report 4304006-2 (Version None)
Quarter: 2004Q1

REPORT INFORMATION
  Report Type: 
  Country: None (occurrence: None)
  Receive Date: 20040223
  Receipt Date: 20031212
  Transmission Date: 20041129
  Serious: No
  Sender: FDA-Public Use
  Company Number: PHEH2003US10505

PATIENT
  Age: 41 Year
  Sex: Female
  Weight: 66.2 kg

DRUGS (4)
  1. ZELNORM [Suspect]
     Indication: CONSTIPATION
     Dosage: 6 MG, BID, ORAL
     Route: 048
     Dates: start: 20030528, end: 20030605
  2. METAMUCIL ^SEARLE^ (PSYLLIUM HYDROPHILLIC MUCILLOID) [Concomitant]
  3. PREVACID [Concomitant]
  4. ADVAIR (SALMETEROL XINAFOATE) [Concomitant]

REACTIONS (3)
  - FLUSHING [None]
  - HEADACHE [None]
  - PALPITATIONS [None]
